FAERS Safety Report 9625660 (Version 1)
Quarter: 2013Q4

REPORT INFORMATION
  Report Type: Spontaneous
  Country: GB (occurrence: GB)
  Receive Date: 20131016
  Receipt Date: 20131016
  Transmission Date: 20140711
  Serious: Yes (Hospitalization)
  Sender: FDA-Public Use
  Company Number: GB-JNJFOC-20131008132

PATIENT
  Age: 83 Year
  Sex: Female

DRUGS (1)
  1. REMINYL [Suspect]
     Indication: DEMENTIA
     Route: 048
     Dates: end: 201310

REACTIONS (1)
  - Hospitalisation [Recovered/Resolved]
